FAERS Safety Report 12815354 (Version 2)
Quarter: 2016Q4

REPORT INFORMATION
  Report Type: Report from Study
  Country: CA (occurrence: CA)
  Receive Date: 20161005
  Receipt Date: 20161222
  Transmission Date: 20170207
  Serious: Yes (Hospitalization)
  Sender: FDA-Public Use
  Company Number: CA-JNJFOC-20160804762

PATIENT
  Sex: Male
  Weight: 97.2 kg

DRUGS (2)
  1. IMURAN [Concomitant]
     Active Substance: AZATHIOPRINE
     Route: 048
  2. REMICADE [Suspect]
     Active Substance: INFLIXIMAB
     Indication: CROHN^S DISEASE
     Route: 042
     Dates: start: 20141203

REACTIONS (5)
  - Hepatic neoplasm [Unknown]
  - Intestinal resection [Unknown]
  - Abdominal abscess [Unknown]
  - Post procedural infection [Unknown]
  - Hepatic failure [Unknown]
